FAERS Safety Report 5337924-7 (Version None)
Quarter: 2007Q2

REPORT INFORMATION
  Report Type: 
  Country: None (occurrence: None)
  Receive Date: 20070327
  Receipt Date: 20070215
  Transmission Date: 20071010
  Serious: No
  Sender: FDA-Public Use
  Company Number: 229093

PATIENT
  Age: 80 Year
  Sex: Female

DRUGS (2)
  1. AVASTIN [Suspect]
     Indication: MACULAR DEGENERATION
     Dosage: 1/MONTH
     Dates: start: 20051201, end: 20060824
  2. EYE DROPS, UNKNOWN TYPE (EYE DROPS NOS) [Concomitant]

REACTIONS (1)
  - DRUG INEFFECTIVE [None]
